FAERS Safety Report 4574031-5 (Version None)
Quarter: 2005Q1

REPORT INFORMATION
  Report Type: 
  Country: None (occurrence: None)
  Receive Date: 20050204
  Receipt Date: 20050124
  Transmission Date: 20050727
  Serious: Yes (Hospitalization)
  Sender: FDA-Public Use
  Company Number: 2005018291

PATIENT
  Sex: Female
  Weight: 50.8029 kg

DRUGS (5)
  1. ROGAINE [Suspect]
     Indication: HYPOTRICHOSIS
     Dosage: 3 ML BID INTERMITTENTLY, TOPICAL
     Route: 061
     Dates: start: 20000101
  2. ROGAINE [Suspect]
     Indication: HYPOTRICHOSIS
     Dosage: 3 ML BID INTERMITTENTLY, TOPICAL
     Route: 061
     Dates: start: 20000101
  3. PANTOPRAZOLE (PANTOPRAZOLE) [Concomitant]
  4. LEVOTHYROXINE SODIUM [Concomitant]
  5. ALENDRONATE SODIUM [Concomitant]

REACTIONS (3)
  - DIVERTICULITIS [None]
  - DIVERTICULUM [None]
  - POST PROCEDURAL COMPLICATION [None]
